FAERS Safety Report 12937071 (Version 2)
Quarter: 2018Q1

REPORT INFORMATION
  Report Type: Spontaneous
  Country: BR (occurrence: BR)
  Receive Date: 20161114
  Receipt Date: 20180108
  Transmission Date: 20180508
  Serious: Yes (Life-Threatening, Other)
  Sender: FDA-Public Use
  Company Number: PHHY2016BR152762

PATIENT
  Sex: Female

DRUGS (3)
  1. MIRTAZAPINE SANDOZ [Suspect]
     Active Substance: MIRTAZAPINE
     Indication: PERINATAL DEPRESSION
     Dosage: UNK/28 COATED TABLETS
     Route: 065
  2. MIRTAZAPINE SANDOZ [Suspect]
     Active Substance: MIRTAZAPINE
     Indication: PERINATAL DEPRESSION
     Dosage: 75 MG, QD
     Route: 048
  3. MIRTAZAPINE SANDOZ [Suspect]
     Active Substance: MIRTAZAPINE
     Indication: ABDOMINAL WALL DISORDER

REACTIONS (8)
  - Wrong technique in product usage process [Unknown]
  - Apparent death [Unknown]
  - Product packaging quantity issue [Unknown]
  - Abdominal wall disorder [Unknown]
  - Drug dependence [Unknown]
  - Product physical issue [Unknown]
  - Eating disorder [Unknown]
  - Incorrect dose administered [Unknown]
